FAERS Safety Report 7342247-0 (Version None)
Quarter: 2011Q1

REPORT INFORMATION
  Report Type: 
  Country: None (occurrence: None)
  Receive Date: 20110310
  Receipt Date: 20110228
  Transmission Date: 20110831
  Serious: Yes (Hospitalization, Other)
  Sender: FDA-Public Use
  Company Number: US-BIOGENIDEC-2010BI038216

PATIENT
  Age: 60 Year
  Sex: Female
  Weight: 54 kg

DRUGS (5)
  1. AVONEX [Suspect]
     Route: 030
     Dates: start: 20050604, end: 20070928
  2. METOPROLOL [Concomitant]
     Indication: MYOCARDITIS
     Dates: end: 20100101
  3. UNKNOWN MEDICATION [Concomitant]
     Indication: HYPERCHOLESTEROLAEMIA
  4. AVONEX [Suspect]
     Route: 030
     Dates: start: 20090319
  5. AVONEX [Suspect]
     Indication: MULTIPLE SCLEROSIS
     Route: 030
     Dates: start: 20040501

REACTIONS (8)
  - MYOCARDIAL INFARCTION [None]
  - DEHYDRATION [None]
  - CORONARY ARTERY STENOSIS [None]
  - WEIGHT DECREASED [None]
  - VOMITING [None]
  - DIARRHOEA [None]
  - VENTRICULAR EXTRASYSTOLES [None]
  - ABDOMINAL ADHESIONS [None]
